FAERS Safety Report 26151201 (Version 1)
Quarter: 2025Q4

REPORT INFORMATION
  Report Type: Report from Study
  Country: CA (occurrence: CA)
  Receive Date: 20251212
  Receipt Date: 20251212
  Transmission Date: 20260117
  Serious: Yes (Hospitalization, Other)
  Sender: PFIZER
  Company Number: CA-PFIZER INC-202500111327

PATIENT
  Age: 45 Year
  Sex: Male
  Weight: 111 kg

DRUGS (13)
  1. IXIFI [Suspect]
     Active Substance: INFLIXIMAB-QBTX
     Indication: Crohn^s disease
     Dosage: 10 MG/KG, EVERY 6 WEEKS
     Route: 042
     Dates: start: 20250801
  2. IXIFI [Suspect]
     Active Substance: INFLIXIMAB-QBTX
     Dosage: 1140MG AFTER 5 WEEKS AND 4 DAYS
     Route: 042
     Dates: start: 20250909
  3. IXIFI [Suspect]
     Active Substance: INFLIXIMAB-QBTX
     Dosage: 1130 MG, 6 WEEKS
     Route: 042
     Dates: start: 20251024
  4. IXIFI [Suspect]
     Active Substance: INFLIXIMAB-QBTX
     Dosage: 1100 MG, EVERY 6 WEEKS
     Route: 042
     Dates: start: 20251205
  5. CIPROFLOXACIN [Concomitant]
     Active Substance: CIPROFLOXACIN
     Dosage: 500 MG
  6. FARXIGA [Concomitant]
     Active Substance: DAPAGLIFLOZIN PROPANEDIOL
     Dosage: 10 MG
  7. FLAGYL [Concomitant]
     Active Substance: METRONIDAZOLE\METRONIDAZOLE HYDROCHLORIDE
     Dosage: 500 MG
  8. IMURAN [Concomitant]
     Active Substance: AZATHIOPRINE
     Dosage: 200 MG
  9. LIPITOR [Concomitant]
     Active Substance: ATORVASTATIN CALCIUM
     Dosage: 60 MG
  10. LIPIDIL [Concomitant]
     Active Substance: FENOFIBRATE
     Dosage: 145 MG
  11. OMEGA-3 FATTY ACIDS [Concomitant]
     Active Substance: OMEGA-3 FATTY ACIDS
     Dosage: 1000 MG
  12. OZEMPIC [Concomitant]
     Active Substance: SEMAGLUTIDE
     Dosage: 1 DF (0.5MG)
  13. RAMIPRIL [Concomitant]
     Active Substance: RAMIPRIL
     Dosage: 5 MG

REACTIONS (6)
  - Abscess [Recovered/Resolved]
  - Fistula [Recovered/Resolved]
  - Condition aggravated [Recovering/Resolving]
  - Off label use [Unknown]
  - Off label use [Unknown]
  - Intentional product use issue [Unknown]

NARRATIVE: CASE EVENT DATE: 20250101
